FAERS Safety Report 15302260 (Version 3)
Quarter: 2018Q3

REPORT INFORMATION
  Report Type: Report from Study
  Country: None (occurrence: US)
  Receive Date: 20180821
  Receipt Date: 20180920
  Transmission Date: 20181010
  Serious: Yes (Other)
  Sender: FDA-Public Use
  Company Number: US-BAUSCH-BL-2018-022791

PATIENT
  Sex: Female
  Weight: 49.03 kg

DRUGS (2)
  1. D?PENICILLAMINE [Suspect]
     Active Substance: PENICILLAMINE
     Indication: HEPATO-LENTICULAR DEGENERATION
     Route: 065
  2. CUPRIMINE [Suspect]
     Active Substance: PENICILLAMINE
     Indication: HEPATO-LENTICULAR DEGENERATION
     Dosage: (2 CAPSULE, AM AND 2 CAPSULE PM) STARTED ABOUT 25 YEAR AGO, 4 YEARS AGO CUPRIMINE WAS DISCONTINUED.
     Route: 048

REACTIONS (8)
  - Panic attack [Not Recovered/Not Resolved]
  - Dystonia [Not Recovered/Not Resolved]
  - Inability to afford medication [Not Recovered/Not Resolved]
  - Liver disorder [Not Recovered/Not Resolved]
  - Cerebral disorder [Not Recovered/Not Resolved]
  - Oesophageal variceal ligation [Recovered/Resolved]
  - Transient ischaemic attack [Recovered/Resolved]
  - Epilepsy [Not Recovered/Not Resolved]

NARRATIVE: CASE EVENT DATE: 2013
